FAERS Safety Report 10755231 (Version 1)
Quarter: 2015Q1

REPORT INFORMATION
  Report Type: Spontaneous
  Country: US (occurrence: None)
  Receive Date: 20150123
  Receipt Date: 20150123
  Transmission Date: 20150721
  Serious: Yes (Other)
  Sender: FDA-Public Use
  Company Number: TAP2007Q00814

PATIENT
  Age: 9 Month
  Sex: Male
  Weight: 7.7 kg

DRUGS (9)
  1. PREVACID SOLUTAB [Suspect]
     Active Substance: LANSOPRAZOLE
     Indication: OESOPHAGITIS
     Dosage: GASTROSTOMY TUBE
     Dates: start: 20070531
  2. ROBINUL (GLYCOPYRRONIUM BROMIDE) [Concomitant]
  3. MIRALAX (MACROGOL) [Concomitant]
  4. BUGS BUNNY VITAMIN (POLY VI SOL) [Concomitant]
  5. VIGABATRIN (VIGABATRIN) [Concomitant]
     Active Substance: VIGABATRIN
  6. CARNITOR (LEVOCARNITINE) [Concomitant]
  7. CALCI-MIX (CALCIUM CARBONATE) [Concomitant]
  8. PHENOBARBITAL (PHENOBARBITAL) [Concomitant]
     Active Substance: PHENOBARBITAL
  9. SODIUM BICARBONATE (SODIUM BICARBONATE) [Concomitant]

REACTIONS (2)
  - Complex partial seizures [None]
  - Condition aggravated [None]

NARRATIVE: CASE EVENT DATE: 20070617
